FAERS Safety Report 9331091 (Version 3)
Quarter: 2013Q2

REPORT INFORMATION
  Report Type: Spontaneous
  Country: JP (occurrence: JP)
  Receive Date: 20130605
  Receipt Date: 20130613
  Transmission Date: 20140414
  Serious: Yes (Disabling)
  Sender: FDA-Public Use
  Company Number: JP-BRISTOL-MYERS SQUIBB COMPANY-18976134

PATIENT
  Age: 71 Year
  Sex: Female
  Weight: 61.3 kg

DRUGS (3)
  1. ELIQUIS [Suspect]
     Indication: CEREBROVASCULAR ACCIDENT
     Route: 048
     Dates: start: 20130524, end: 20130526
  2. VASOLAN [Concomitant]
     Route: 048
  3. NORVASC [Concomitant]
     Route: 048

REACTIONS (1)
  - Cerebral infarction [Recovered/Resolved with Sequelae]
